FAERS Safety Report 8294167-5 (Version None)
Quarter: 2012Q2

REPORT INFORMATION
  Report Type: 
  Country: None (occurrence: None)
  Receive Date: 20120418
  Receipt Date: 20120413
  Transmission Date: 20120825
  Serious: Yes (Other)
  Sender: FDA-Public Use
  Company Number: PHEH2012US008053

PATIENT

DRUGS (1)
  1. LOTREL [Suspect]

REACTIONS (1)
  - CYSTITIS INTERSTITIAL [None]
